FAERS Safety Report 10623324 (Version 4)
Quarter: 2015Q1

REPORT INFORMATION
  Report Type: Spontaneous
  Country: US (occurrence: US)
  Receive Date: 20141203
  Receipt Date: 20150105
  Transmission Date: 20150720
  Serious: Yes (Hospitalization)
  Sender: FDA-Public Use
  Company Number: US-UNITED THERAPEUTICS-UNT-2014-010801

PATIENT
  Sex: Female
  Weight: 56.69 kg

DRUGS (5)
  1. REMODULIN [Suspect]
     Active Substance: TREPROSTINIL
     Indication: PULMONARY HYPERTENSION
     Dosage: 0.175 ?G/KG, CONTINUING
     Route: 041
     Dates: start: 20100917
  2. REMODULIN [Suspect]
     Active Substance: TREPROSTINIL
     Dosage: 0.195 ?G/KG, CONTINUING
     Route: 041
     Dates: start: 20100917
  3. REVATIO [Concomitant]
     Active Substance: SILDENAFIL CITRATE
     Indication: PRODUCT USED FOR UNKNOWN INDICATION
  4. TRACLEER [Concomitant]
     Active Substance: BOSENTAN\BOSENTAN MONOHYDRATE
     Indication: PRODUCT USED FOR UNKNOWN INDICATION
  5. REMODULIN [Suspect]
     Active Substance: TREPROSTINIL
     Dosage: 0.209 ?G/KG, CONTINUING
     Route: 041
     Dates: start: 20100917

REACTIONS (4)
  - Incorrect dose administered [Unknown]
  - Fluid retention [Unknown]
  - Pulmonary arterial hypertension [Unknown]
  - Malaise [Unknown]

NARRATIVE: CASE EVENT DATE: 2014
